FAERS Safety Report 21768439 (Version 1)
Quarter: 2022Q4

REPORT INFORMATION
  Report Type: Spontaneous
  Country: FR (occurrence: FR)
  Receive Date: 20221222
  Receipt Date: 20221222
  Transmission Date: 20230113
  Serious: Yes (Hospitalization)
  Sender: FDA-Public Use
  Company Number: None

PATIENT
  Age: 65 Year
  Sex: Male

DRUGS (5)
  1. PACLITAXEL [Suspect]
     Active Substance: PACLITAXEL
     Indication: Lung adenocarcinoma
     Dosage: 180MG, START DATE: 14-JUN-2022
     Route: 042
     Dates: end: 20220614
  2. PACLITAXEL [Suspect]
     Active Substance: PACLITAXEL
     Dosage: 180MG, START DATE: 21-JUN-2022
     Route: 042
     Dates: end: 20220621
  3. PEMETREXED [Suspect]
     Active Substance: PEMETREXED
     Indication: Lung adenocarcinoma
     Dosage: 1000 MG, START DATE: 04-AUG-2022
     Route: 042
     Dates: end: 20220804
  4. CARBOPLATIN [Suspect]
     Active Substance: CARBOPLATIN
     Indication: Lung adenocarcinoma
     Dosage: 450 MG, START DATE: 14-JUN-2022
     Route: 042
     Dates: end: 20220614
  5. CARBOPLATIN [Suspect]
     Active Substance: CARBOPLATIN
     Dosage: 520MG, START DATE: 04-AUG-2022
     Route: 042
     Dates: end: 20220804

REACTIONS (3)
  - Hepatic cytolysis [Not Recovered/Not Resolved]
  - Cholestasis [Not Recovered/Not Resolved]
  - Condition aggravated [Not Recovered/Not Resolved]

NARRATIVE: CASE EVENT DATE: 20220601
